FAERS Safety Report 17296416 (Version 1)
Quarter: 2020Q1

REPORT INFORMATION
  Report Type: Spontaneous
  Country: DE (occurrence: DE)
  Receive Date: 20200121
  Receipt Date: 20200121
  Transmission Date: 20200409
  Serious: Yes (Death, Other)
  Sender: FDA-Public Use
  Company Number: DE-MYLANLABS-2020M1004955

PATIENT
  Age: 53 Year

DRUGS (5)
  1. PEMETREXED. [Suspect]
     Active Substance: PEMETREXED
     Indication: LUNG NEOPLASM MALIGNANT
     Dosage: UNK
  2. PEMBROLIZUMAB. [Suspect]
     Active Substance: PEMBROLIZUMAB
     Indication: LUNG NEOPLASM MALIGNANT
     Dosage: UNK
  3. NINTEDANIB [Suspect]
     Active Substance: NINTEDANIB
     Indication: LUNG NEOPLASM MALIGNANT
     Dosage: 2 CYCLES
     Dates: start: 20180123, end: 20180213
  4. DOCETAXEL. [Suspect]
     Active Substance: DOCETAXEL
     Indication: LUNG NEOPLASM MALIGNANT
     Dosage: 2 CYCLES
     Dates: start: 20180123, end: 20180213
  5. CARBOPLATIN. [Suspect]
     Active Substance: CARBOPLATIN
     Indication: LUNG NEOPLASM MALIGNANT
     Dosage: UNK

REACTIONS (2)
  - Death [Fatal]
  - Malignant neoplasm progression [Unknown]

NARRATIVE: CASE EVENT DATE: 2018
